FAERS Safety Report 8078407-3 (Version None)
Quarter: 2012Q1

REPORT INFORMATION
  Report Type: 
  Country: None (occurrence: None)
  Receive Date: 20120123
  Receipt Date: 20120110
  Transmission Date: 20120608
  Serious: Yes (Life-Threatening, Hospitalization, Other)
  Sender: FDA-Public Use
  Company Number: INT_00047_2012

PATIENT
  Age: 6 Year
  Sex: Female

DRUGS (1)
  1. CEFTRIAXONE [Suspect]
     Indication: ANTIBIOTIC PROPHYLAXIS
     Dosage: (50 MG/KG EVERY 24 HOURS INTRAVENOUS (NOT OTHERWISE SPECIFIED)
     Route: 042

REACTIONS (16)
  - CARDIO-RESPIRATORY ARREST [None]
  - NERVOUS SYSTEM DISORDER [None]
  - NO REACTION ON PREVIOUS EXPOSURE TO DRUG [None]
  - OVERDOSE [None]
  - BLOOD PH DECREASED [None]
  - HAEMOLYSIS [None]
  - MOANING [None]
  - FEMORAL PULSE ABNORMAL [None]
  - BACK PAIN [None]
  - VOMITING [None]
  - INCONTINENCE [None]
  - GENERAL PHYSICAL HEALTH DETERIORATION [None]
  - CEREBRAL ISCHAEMIA [None]
  - DRUG SPECIFIC ANTIBODY PRESENT [None]
  - UNRESPONSIVE TO STIMULI [None]
  - ISCHAEMIC STROKE [None]
